FAERS Safety Report 23825473 (Version 1)
Quarter: 2024Q2

REPORT INFORMATION
  Report Type: Spontaneous
  Country: CO (occurrence: CO)
  Receive Date: 20240507
  Receipt Date: 20240507
  Transmission Date: 20240715
  Serious: Yes (Hospitalization, Other)
  Sender: FDA-Public Use
  Company Number: CO-GLANDPHARMA-CO-2024GLNLIT00094

PATIENT
  Sex: Male

DRUGS (2)
  1. HEPARIN SODIUM [Suspect]
     Active Substance: HEPARIN SODIUM
     Indication: Anticoagulant therapy
     Dosage: 12 U/KG/HR
     Route: 065
     Dates: start: 20220214
  2. WARFARIN [Concomitant]
     Active Substance: WARFARIN
     Indication: Anticoagulant therapy
     Route: 065
     Dates: start: 20220214

REACTIONS (1)
  - Drug reaction with eosinophilia and systemic symptoms [Recovered/Resolved]

NARRATIVE: CASE EVENT DATE: 20220224
